FAERS Safety Report 5533106-4 (Version None)
Quarter: 2007Q4

REPORT INFORMATION
  Report Type: 
  Country: None (occurrence: None)
  Receive Date: 20071120
  Receipt Date: 20070904
  Transmission Date: 20080405
  Serious: No
  Sender: FDA-Public Use
  Company Number: WAES 0706USA01857

PATIENT
  Sex: Male

DRUGS (3)
  1. JANUVIA [Suspect]
     Indication: DIABETES MELLITUS
     Dosage: 100 MG/DAILY/PO
     Route: 048
     Dates: start: 20070528, end: 20070101
  2. AMARYL [Concomitant]
  3. JANUMET [Concomitant]

REACTIONS (1)
  - BLOOD GLUCOSE INCREASED [None]
